FAERS Safety Report 6073750-1 (Version None)
Quarter: 2009Q1

REPORT INFORMATION
  Report Type: 
  Country: None (occurrence: None)
  Receive Date: 20090211
  Receipt Date: 20090130
  Transmission Date: 20090719
  Serious: Yes (Hospitalization, Other)
  Sender: FDA-Public Use
  Company Number: JP-BRISTOL-MYERS SQUIBB COMPANY-14326425

PATIENT
  Age: 66 Year
  Sex: Male

DRUGS (10)
  1. SINEMET [Suspect]
     Indication: PARKINSON'S DISEASE
     Route: 048
  2. ZETIA [Interacting]
     Indication: HYPERCHOLESTEROLAEMIA
     Dosage: FORMULATION: TABLET
     Route: 048
     Dates: start: 20080430, end: 20080622
  3. HIBERNA [Interacting]
     Indication: PARKINSON'S DISEASE
     Route: 048
     Dates: end: 20080621
  4. DEPAKENE [Interacting]
     Indication: BIPOLAR I DISORDER
     Route: 048
     Dates: end: 20080621
  5. HALOSTEN [Interacting]
     Indication: BIPOLAR I DISORDER
     Route: 048
     Dates: end: 20080621
  6. CABASER [Interacting]
     Indication: PARKINSON'S DISEASE
     Route: 048
  7. MAGNESIUM OXIDE [Concomitant]
  8. NITRAZEPAM [Concomitant]
     Dates: end: 20080621
  9. REBAMIPIDE [Concomitant]
  10. SENNOSIDES [Concomitant]

REACTIONS (2)
  - DRUG INTERACTION [None]
  - RHABDOMYOLYSIS [None]
